FAERS Safety Report 19622213 (Version 2)
Quarter: 2021Q3

REPORT INFORMATION
  Report Type: Spontaneous
  Country: US (occurrence: US)
  Receive Date: 20210728
  Receipt Date: 20210810
  Transmission Date: 20211014
  Serious: Yes (Other)
  Sender: FDA-Public Use
  Company Number: US-COOPERSURGICAL, INC.-US-2021CPS002030

PATIENT
  Age: 27 Year
  Sex: Female
  Weight: 62.59 kg

DRUGS (3)
  1. PARAGARD T 380A [Suspect]
     Active Substance: COPPER
     Indication: CONTRACEPTION
     Dosage: UNK
     Route: 015
     Dates: start: 20150624
  2. FLOVENT [Concomitant]
     Active Substance: FLUTICASONE PROPIONATE
     Indication: ASTHMA
     Dosage: UNK
     Route: 065
  3. ALBUTEROL SULFATE. [Concomitant]
     Active Substance: ALBUTEROL SULFATE
     Indication: ASTHMA
     Dosage: UNK
     Route: 065

REACTIONS (9)
  - Device breakage [Not Recovered/Not Resolved]
  - Pelvic pain [Unknown]
  - Cervical dysplasia [Unknown]
  - Device expulsion [Not Recovered/Not Resolved]
  - Menstruation irregular [Unknown]
  - Foreign body in reproductive tract [Not Recovered/Not Resolved]
  - Urinary tract infection [Unknown]
  - Complication of device removal [Not Recovered/Not Resolved]
  - Heavy menstrual bleeding [Unknown]

NARRATIVE: CASE EVENT DATE: 2015
